FAERS Safety Report 6575806-3 (Version None)
Quarter: 2010Q1

REPORT INFORMATION
  Report Type: 
  Country: None (occurrence: None)
  Receive Date: 20100209
  Receipt Date: 20100201
  Transmission Date: 20100710
  Serious: Yes (Other)
  Sender: FDA-Public Use
  Company Number: GB-JNJFOC-20100202572

PATIENT
  Age: 30 Year
  Sex: Female

DRUGS (4)
  1. TOPIRAMATE [Suspect]
     Indication: INTRACRANIAL PRESSURE INCREASED
     Route: 065
  2. TOPIRAMATE [Suspect]
     Route: 065
  3. IMPLANON [Interacting]
     Indication: CONTRACEPTION
     Route: 065
  4. IMPLANON [Interacting]
     Route: 065

REACTIONS (5)
  - ABORTION SPONTANEOUS [None]
  - AMENORRHOEA [None]
  - DRUG EXPOSURE DURING PREGNANCY [None]
  - DRUG INTERACTION [None]
  - PREGNANCY WITH IMPLANT CONTRACEPTIVE [None]
